FAERS Safety Report 23484824 (Version 1)
Quarter: 2024Q1

REPORT INFORMATION
  Report Type: Report from Study
  Country: US (occurrence: US)
  Receive Date: 20240206
  Receipt Date: 20240206
  Transmission Date: 20240409
  Serious: No
  Sender: FDA-Public Use
  Company Number: US-ORG100014127-2023000154

PATIENT
  Age: 55 Year
  Sex: Female

DRUGS (13)
  1. LYSODREN [Suspect]
     Active Substance: MITOTANE
     Indication: Cushing^s syndrome
     Dosage: 1 TABLET (500 MG TOTAL) ORALLY AT NIGHT
     Route: 048
     Dates: start: 20230204
  2. Atenolol tab 50mg [Concomitant]
     Indication: Product used for unknown indication
  3. BACTRIM TAB 400-80MG [Concomitant]
     Indication: Product used for unknown indication
  4. clonidine tab 0.1mg [Concomitant]
     Indication: Product used for unknown indication
  5. furosemide tab 40mg [Concomitant]
     Indication: Product used for unknown indication
  6. HUMALOG [Concomitant]
     Active Substance: INSULIN LISPRO
     Indication: Product used for unknown indication
  7. Ketoconazole tab 200mg [Concomitant]
     Indication: Product used for unknown indication
  8. Nifedipine tab 60mg er [Concomitant]
     Indication: Product used for unknown indication
  9. Oxycodone tab 10mg [Concomitant]
     Indication: Product used for unknown indication
  10. Pot cl micro tab 20meq cr [Concomitant]
     Indication: Product used for unknown indication
  11. Prochlorper tab 10mg [Concomitant]
     Indication: Product used for unknown indication
  12. Semglee inj 100u/ml [Concomitant]
     Indication: Product used for unknown indication
  13. ONDANSETRON TAB 8MG ODT [Concomitant]
     Indication: Product used for unknown indication

REACTIONS (1)
  - Off label use [Recovered/Resolved]

NARRATIVE: CASE EVENT DATE: 20230204
